FAERS Safety Report 25168856 (Version 1)
Quarter: 2025Q2

REPORT INFORMATION
  Report Type: Spontaneous
  Country: US (occurrence: US)
  Receive Date: 20250407
  Receipt Date: 20250407
  Transmission Date: 20250717
  Serious: No
  Sender: INTRA-CELLULAR THERAPIES
  Company Number: US-INTRA-CELLULAR THERAPIES, INC.-2025ICT00076

PATIENT
  Age: 3 Decade
  Sex: Female

DRUGS (3)
  1. CAPLYTA [Suspect]
     Active Substance: LUMATEPERONE
     Indication: Bipolar disorder
  2. LITHIUM [Concomitant]
     Active Substance: LITHIUM
  3. HUMAN IMMUNOGLOBULIN G [Concomitant]
     Active Substance: HUMAN IMMUNOGLOBULIN G
     Dosage: UNK, 1X/MONTH

REACTIONS (4)
  - Brain fog [Not Recovered/Not Resolved]
  - Electric shock sensation [Recovered/Resolved]
  - Nausea [Not Recovered/Not Resolved]
  - Burning sensation [Recovered/Resolved]
